FAERS Safety Report 9797534 (Version 2)
Quarter: 2014Q1

REPORT INFORMATION
  Report Type: Spontaneous
  Country: PL (occurrence: PL)
  Receive Date: 20140106
  Receipt Date: 20140106
  Transmission Date: 20141002
  Serious: Yes (Other)
  Sender: FDA-Public Use
  Company Number: ALCN2013PL006172

PATIENT
  Age: 8 Year
  Sex: Male
  Weight: 25 kg

DRUGS (5)
  1. MAXITROL [Suspect]
     Indication: ANTIINFLAMMATORY THERAPY
     Dosage: 4 DF, QD
     Route: 047
     Dates: start: 20131024
  2. MAXITROL [Suspect]
     Dosage: 2 DF, QD
     Route: 047
     Dates: end: 20131106
  3. MAXITROL [Suspect]
     Indication: ANTIINFLAMMATORY THERAPY
     Dosage: 4 DF, QD
     Route: 047
     Dates: start: 20131024, end: 20131106
  4. MAXITROL [Suspect]
     Dosage: 2 DF, QD
     Route: 047
     Dates: end: 20131106
  5. LOTEMAX [Concomitant]
     Indication: ANTIINFLAMMATORY THERAPY
     Dosage: 4 DF, QD
     Route: 047
     Dates: start: 20131031, end: 20131106

REACTIONS (2)
  - Mydriasis [Recovered/Resolved]
  - Pupillary reflex impaired [Recovered/Resolved]
